FAERS Safety Report 4426706-6 (Version None)
Quarter: 2004Q3

REPORT INFORMATION
  Report Type: 
  Country: None (occurrence: None)
  Receive Date: 20040811
  Receipt Date: 20040722
  Transmission Date: 20050211
  Serious: Yes (Other)
  Sender: FDA-Public Use
  Company Number: USA040773445

PATIENT
  Age: 47 Year
  Sex: Male

DRUGS (3)
  1. ZYPREXA [Suspect]
     Indication: SCHIZOPHRENIA
     Dosage: 50 MG DAY
     Route: 048
     Dates: start: 19940101
  2. SEROQUEL (QUETIAPINE FUMURATE) [Concomitant]
  3. LORAZEPAM [Concomitant]

REACTIONS (1)
  - RENAL DISORDER [None]
